FAERS Safety Report 7391713-0 (Version None)
Quarter: 2011Q2

REPORT INFORMATION
  Report Type: 
  Country: None (occurrence: None)
  Receive Date: 20110404
  Receipt Date: 20110321
  Transmission Date: 20111010
  Serious: Yes (Other)
  Sender: FDA-Public Use
  Company Number: SE-JNJFOC-20110201043

PATIENT
  Sex: Male

DRUGS (2)
  1. REMICADE [Suspect]
     Indication: JUVENILE ARTHRITIS
     Route: 042
  2. NAPROXEN [Concomitant]

REACTIONS (4)
  - DECREASED APPETITE [None]
  - BLOOD AMYLASE INCREASED [None]
  - THIRST [None]
  - PRURITUS [None]
